FAERS Safety Report 8022150-3 (Version None)
Quarter: 2012Q1

REPORT INFORMATION
  Report Type: 
  Country: None (occurrence: None)
  Receive Date: 20120104
  Receipt Date: 20111227
  Transmission Date: 20120608
  Serious: Yes (Other)
  Sender: FDA-Public Use
  Company Number: US-BAYER-2011-065261

PATIENT
  Age: 52 Year
  Sex: Female
  Weight: 87.075 kg

DRUGS (24)
  1. YASMIN [Suspect]
     Indication: HORMONE LEVEL ABNORMAL
     Dosage: UNK
     Dates: start: 20051101, end: 20080601
  2. ZOLOFT [Concomitant]
     Indication: DEPRESSION
     Dosage: 50 MG, QD
     Route: 048
     Dates: start: 20091101, end: 20091201
  3. AMBIEN [Concomitant]
     Dosage: 10 MG, QD
     Route: 048
  4. CLARINEX [LORATADINE,PSEUDOEPHEDRINE SULFATE] [Concomitant]
     Indication: MULTIPLE ALLERGIES
     Dosage: UNK UNK, BID
     Route: 048
     Dates: start: 20091101, end: 20091201
  5. VIVELLE-DOT [Concomitant]
     Indication: HORMONE LEVEL ABNORMAL
     Dosage: UNK UNK, BIW
     Dates: start: 20091101, end: 20091201
  6. FLONASE [Concomitant]
     Indication: MULTIPLE ALLERGIES
     Dosage: 50 ?G, BID
     Dates: start: 20091101, end: 20091201
  7. PATANOL [Concomitant]
     Indication: MULTIPLE ALLERGIES
     Dosage: 0.1 %, PRN
     Dates: start: 20091101, end: 20091201
  8. ACIPHEX [Concomitant]
     Dosage: UNK UNK, QD
     Dates: start: 20091101, end: 20091201
  9. LYRICA [Concomitant]
     Indication: PAIN
     Dosage: 300 MG, BID
     Route: 048
  10. NEXIUM [Concomitant]
     Indication: GASTROOESOPHAGEAL REFLUX DISEASE
     Dosage: 40 MG, QD
     Route: 048
     Dates: start: 20091101, end: 20091201
  11. IMITREX [Concomitant]
     Indication: MIGRAINE
  12. ZOLPIDEM [Concomitant]
     Indication: SLEEP DISORDER
  13. CELEBREX [Concomitant]
     Dosage: 200 MG, BID
  14. SUMATRIPTAN [Concomitant]
     Indication: MIGRAINE
  15. MIRALAX [Concomitant]
     Indication: GASTROOESOPHAGEAL REFLUX DISEASE
     Dosage: UNK
     Route: 048
     Dates: start: 20091101, end: 20091201
  16. ACIPHEX [Concomitant]
     Indication: GASTROOESOPHAGEAL REFLUX DISEASE
     Dosage: 20 MG, QD
     Route: 048
  17. TREXIMET [Concomitant]
     Indication: MIGRAINE
     Dosage: UNK
     Route: 048
     Dates: start: 20091101, end: 20091201
  18. DROSPIRENONE AND ETHINYL ESTRADIOL [Suspect]
     Indication: HORMONE LEVEL ABNORMAL
     Dosage: UNK
     Dates: start: 20080701, end: 20110201
  19. FLUCONAZOLE [Concomitant]
     Indication: OESOPHAGITIS
     Dosage: UNK UNK, QD
     Dates: start: 20091101, end: 20091201
  20. OXYCODONE HCL AND ACETAMINOPHEN [Concomitant]
     Indication: PAIN
     Dosage: UNK
     Dates: start: 20091101, end: 20091201
  21. TOPAMAX [Concomitant]
     Dosage: 50 MG, BID
     Route: 048
  22. TRILIPIX [Concomitant]
     Indication: BLOOD TRIGLYCERIDES ABNORMAL
     Dosage: 135 MG, QD
     Route: 048
  23. ZANTAC [Concomitant]
     Indication: NAUSEA
     Dosage: 150 MG, BID
     Route: 048
     Dates: start: 20091101, end: 20091201
  24. PERCOCET [Concomitant]
     Dosage: 10 MG, PRN
     Route: 048

REACTIONS (4)
  - INJURY [None]
  - CHOLELITHIASIS [None]
  - PAIN [None]
  - CHOLECYSTITIS [None]
